FAERS Safety Report 23241206 (Version 1)
Quarter: 2023Q4

REPORT INFORMATION
  Report Type: Spontaneous
  Country: ES (occurrence: ES)
  Receive Date: 20231129
  Receipt Date: 20231129
  Transmission Date: 20240110
  Serious: Yes (Life-Threatening, Hospitalization, Other)
  Sender: FDA-Public Use
  Company Number: None

PATIENT
  Age: 88 Year
  Sex: Female

DRUGS (1)
  1. ENOXAPARIN SODIUM [Suspect]
     Active Substance: ENOXAPARIN SODIUM
     Indication: Atrial fibrillation
     Route: 058
     Dates: start: 20230720, end: 20230828

REACTIONS (3)
  - Hypovolaemic shock [Recovered/Resolved]
  - Anaemia [Recovered/Resolved]
  - Retroperitoneal haematoma [Recovering/Resolving]

NARRATIVE: CASE EVENT DATE: 20230828
